FAERS Safety Report 5075871-9 (Version None)
Quarter: 2006Q3

REPORT INFORMATION
  Report Type: 
  Country: None (occurrence: None)
  Receive Date: 20060807
  Receipt Date: 20060723
  Transmission Date: 20061208
  Serious: Yes (Other)
  Sender: FDA-Public Use
  Company Number: 2006088428

PATIENT
  Age: 22 Year
  Sex: Male
  Weight: 79.3795 kg

DRUGS (3)
  1. GEODON [Suspect]
     Indication: MENTAL DISORDER
     Dosage: 160 MG (80 MG, 2 IN 1 D)
     Dates: start: 20060706, end: 20060718
  2. NEURONTIN [Concomitant]
  3. XANAX [Concomitant]

REACTIONS (11)
  - APHASIA [None]
  - CHILLS [None]
  - DIPLEGIA [None]
  - HYPOAESTHESIA [None]
  - INSOMNIA [None]
  - JOINT LOCK [None]
  - MUSCLE TIGHTNESS [None]
  - PAIN IN EXTREMITY [None]
  - PAIN IN JAW [None]
  - PARAESTHESIA [None]
  - SENSORY LOSS [None]
